FAERS Safety Report 10484775 (Version 1)
Quarter: 2014Q3

REPORT INFORMATION
  Report Type: Spontaneous
  Country: US (occurrence: US)
  Receive Date: 20140930
  Receipt Date: 20140930
  Transmission Date: 20150326
  Serious: Yes (Other)
  Sender: FDA-Public Use
  Company Number: US-BAYER-2014-144814

PATIENT
  Age: 25 Year
  Sex: Female

DRUGS (1)
  1. MIRENA [Suspect]
     Active Substance: LEVONORGESTREL
     Dosage: 20 MCG/24HR, CONT
     Route: 015
     Dates: start: 20131008

REACTIONS (11)
  - Uterine perforation [None]
  - Device difficult to use [None]
  - Complication of device removal [None]
  - Emotional distress [None]
  - Injury [None]
  - Device breakage [None]
  - Pelvic pain [None]
  - Pelvic discomfort [None]
  - Genital haemorrhage [None]
  - Post procedural discomfort [Not Recovered/Not Resolved]
  - Procedural pain [Not Recovered/Not Resolved]

NARRATIVE: CASE EVENT DATE: 201403
